FAERS Safety Report 6259743-X (Version None)
Quarter: 2009Q3

REPORT INFORMATION
  Report Type: 
  Country: None (occurrence: None)
  Receive Date: 20090701
  Receipt Date: 20090626
  Transmission Date: 20100115
  Serious: Yes (Other)
  Sender: FDA-Public Use
  Company Number: A0794926A

PATIENT
  Age: 83 Year
  Sex: Female

DRUGS (1)
  1. UREA PEROXIDE [Suspect]
     Indication: DRUG USE FOR UNKNOWN INDICATION
     Dosage: 5 DROPS / AURAL
     Route: 001
     Dates: start: 20090625

REACTIONS (1)
  - DEAFNESS TRANSITORY [None]
